FAERS Safety Report 5691476-0 (Version None)
Quarter: 2008Q1

REPORT INFORMATION
  Report Type: 
  Country: None (occurrence: None)
  Receive Date: 20080331
  Receipt Date: 20080327
  Transmission Date: 20080703
  Serious: Yes (Other)
  Sender: FDA-Public Use
  Company Number: A0703527A

PATIENT
  Age: 55 Year
  Sex: Female

DRUGS (1)
  1. UREA PEROXIDE [Suspect]
     Dosage: EAR DROPS

REACTIONS (6)
  - AURICULAR SWELLING [None]
  - DEAFNESS UNILATERAL [None]
  - OTITIS EXTERNA [None]
  - OTITIS MEDIA [None]
  - PHARMACEUTICAL PRODUCT COMPLAINT [None]
  - SINUSITIS [None]
